FAERS Safety Report 9015882 (Version 2)
Quarter: 2013Q1

REPORT INFORMATION
  Report Type: Spontaneous
  Country: FR (occurrence: FR)
  Receive Date: 20130116
  Receipt Date: 20130206
  Transmission Date: 20140127
  Serious: Yes (Other)
  Sender: FDA-Public Use
  Company Number: FR-ASTRAZENECA-2013SE02546

PATIENT
  Age: 23 Year
  Sex: Female
  Weight: 54 kg

DRUGS (5)
  1. DIPRIVAN [Suspect]
     Indication: ANAESTHESIA
     Route: 042
     Dates: start: 20120319
  2. KETAMINE [Suspect]
     Indication: ANAESTHESIA
     Route: 065
     Dates: start: 20120319
  3. HYPNOVEL [Suspect]
     Indication: ANAESTHESIA
     Route: 065
     Dates: start: 20120319
  4. DROPERIDOL [Suspect]
     Indication: ANAESTHESIA
     Route: 065
     Dates: start: 20120319
  5. SUFENTA [Suspect]
     Indication: ANAESTHESIA
     Route: 065
     Dates: start: 20120319

REACTIONS (2)
  - Tachycardia [Recovered/Resolved]
  - Generalised erythema [Recovered/Resolved]
